FAERS Safety Report 19549190 (Version 1)
Quarter: 2021Q3

REPORT INFORMATION
  Report Type: Spontaneous
  Country: US (occurrence: US)
  Receive Date: 20210715
  Receipt Date: 20210715
  Transmission Date: 20211014
  Serious: No
  Sender: FDA-Public Use
  Company Number: None

PATIENT
  Sex: Female

DRUGS (11)
  1. ASPIRIN 81 LOW DOSE    TADALAFIL [Concomitant]
  2. KEPPRA   VITAMIN D3 [Concomitant]
  3. ARANESP ALBUMIN FREE   ZINC [Concomitant]
  4. PROBIOTIC ACIDOPHILUS SUP    UPTRAVI [Concomitant]
  5. PANTOPRAZOLE SODIUM    CALCIUM [Concomitant]
  6. METAMUCIL    METFORMIN HYDROCHLORIDE [Concomitant]
  7. VITAMIN C    LIPITOR [Concomitant]
  8. MAGNESIUM    VITAMIN B?12 [Concomitant]
  9. AMBRISENTAN [Suspect]
     Active Substance: AMBRISENTAN
     Indication: PULMONARY ARTERIAL HYPERTENSION
     Route: 048
  10. LASIX    POTASSIUM [Concomitant]
  11. TADALAFIL. [Suspect]
     Active Substance: TADALAFIL

REACTIONS (4)
  - Pain in jaw [None]
  - Anaemia [None]
  - Hot flush [None]
  - Cardiac failure [None]
